FAERS Safety Report 14141049 (Version 2)
Quarter: 2017Q4

REPORT INFORMATION
  Report Type: Report from Study
  Country: None (occurrence: LB)
  Receive Date: 20171030
  Receipt Date: 20171123
  Transmission Date: 20180321
  Serious: Yes (Hospitalization)
  Sender: FDA-Public Use
  Company Number: LB-ABBVIE-17K-093-2115448-00

PATIENT
  Age: 56 Year
  Sex: Male
  Weight: 68 kg

DRUGS (6)
  1. MAGNE B6 [Concomitant]
     Active Substance: MAGNESIUM\PYRIDOXINE
     Indication: PRODUCT USED FOR UNKNOWN INDICATION
     Route: 048
  2. HUMIRA [Suspect]
     Active Substance: ADALIMUMAB
     Indication: INFLAMMATORY BOWEL DISEASE
     Route: 058
     Dates: start: 201705, end: 201705
  3. EURO D [Concomitant]
     Indication: PRODUCT USED FOR UNKNOWN INDICATION
     Route: 048
  4. SPIRIVA [Concomitant]
     Active Substance: TIOTROPIUM BROMIDE MONOHYDRATE
     Indication: PRODUCT USED FOR UNKNOWN INDICATION
     Dosage: 1 SIP DAILY
     Route: 055
  5. HUMIRA [Suspect]
     Active Substance: ADALIMUMAB
     Route: 058
     Dates: start: 201706
  6. HUMIRA [Suspect]
     Active Substance: ADALIMUMAB
     Indication: CROHN^S DISEASE
     Route: 058
     Dates: start: 201705, end: 201705

REACTIONS (16)
  - Gastrointestinal mucosa hyperaemia [Unknown]
  - Protein total decreased [Unknown]
  - Hepatic enzyme increased [Unknown]
  - Haematocrit decreased [Unknown]
  - Inflammatory bowel disease [Not Recovered/Not Resolved]
  - Ileal stenosis [Unknown]
  - Abdominal pain [Recovering/Resolving]
  - Iron deficiency [Unknown]
  - Red blood cell count decreased [Unknown]
  - Ileal ulcer [Unknown]
  - Vitamin D deficiency [Unknown]
  - Pain in extremity [Not Recovered/Not Resolved]
  - Hypomagnesaemia [Unknown]
  - Haemoglobin decreased [Unknown]
  - Peripheral swelling [Not Recovered/Not Resolved]
  - Blood albumin decreased [Unknown]

NARRATIVE: CASE EVENT DATE: 201706
